FAERS Safety Report 6803105-0 (Version None)
Quarter: 2010Q2

REPORT INFORMATION
  Report Type: 
  Country: None (occurrence: None)
  Receive Date: 20100628
  Receipt Date: 20100628
  Transmission Date: 20101027
  Serious: Yes (Other)
  Sender: FDA-Public Use
  Company Number: A0809541A

PATIENT

DRUGS (1)
  1. LAPATINIB [Suspect]
     Indication: BREAST CANCER
     Route: 048

REACTIONS (1)
  - INTERSTITIAL LUNG DISEASE [None]
